FAERS Safety Report 20689122 (Version 1)
Quarter: 2022Q2

REPORT INFORMATION
  Report Type: Spontaneous
  Country: CZ (occurrence: CZ)
  Receive Date: 20220408
  Receipt Date: 20220408
  Transmission Date: 20220720
  Serious: Yes (Death, Life-Threatening, Hospitalization, Other)
  Sender: FDA-Public Use
  Company Number: None

PATIENT
  Age: 43 Year
  Sex: Male
  Weight: 73 kg

DRUGS (19)
  1. CARBOPLATIN [Suspect]
     Active Substance: CARBOPLATIN
     Indication: Lung neoplasm malignant
     Route: 042
     Dates: start: 20220209, end: 20220209
  2. PACLITAXEL [Suspect]
     Active Substance: PACLITAXEL
     Indication: Lung neoplasm malignant
     Route: 042
     Dates: start: 20220209, end: 20220209
  3. IPILIMUMAB [Suspect]
     Active Substance: IPILIMUMAB
     Indication: Lung neoplasm malignant
     Route: 042
     Dates: start: 20220209, end: 20220209
  4. NIVOLUMAB [Suspect]
     Active Substance: NIVOLUMAB
     Indication: Lung neoplasm malignant
     Route: 042
     Dates: start: 20220209, end: 20220209
  5. FAMOTIDINE [Concomitant]
     Active Substance: FAMOTIDINE
  6. Biofenac [Concomitant]
     Dosage: 1-0-1
     Route: 048
  7. OXYCONTIN [Concomitant]
     Active Substance: OXYCODONE HYDROCHLORIDE
     Dosage: 1-0-1
     Route: 048
  8. CIPROFLOXACIN [Concomitant]
     Active Substance: CIPROFLOXACIN
     Dosage: 1-0-1
     Route: 048
  9. ALLOPURINOL [Concomitant]
     Active Substance: ALLOPURINOL
     Dosage: 0-1-0
     Route: 048
  10. VENLAFAXINE HYDROCHLORIDE [Concomitant]
     Active Substance: VENLAFAXINE HYDROCHLORIDE
     Indication: Depression
     Dosage: 1-0-0
     Route: 048
  11. QUETIAPINE FUMARATE [Concomitant]
     Active Substance: QUETIAPINE FUMARATE
     Dosage: TWO TABLETS FOR THE NIGHT
     Route: 048
  12. CONTROLOC [Concomitant]
     Active Substance: PANTOPRAZOLE SODIUM
     Dosage: 1-0-0
     Route: 048
  13. BUPRENORPHINE [Concomitant]
     Active Substance: BUPRENORPHINE
     Dosage: 70 UG/H, EVERY 72 HOURS
  14. PROTHIADEN [Concomitant]
     Active Substance: DOTHIEPIN HYDROCHLORIDE
     Indication: Depression
     Dosage: 1-0-0
     Route: 048
  15. GRANISETRON HYDROCHLORIDE [Concomitant]
     Active Substance: GRANISETRON HYDROCHLORIDE
  16. AMLODIPINE\PERINDOPRIL [Concomitant]
     Active Substance: AMLODIPINE\PERINDOPRIL
     Indication: Hypertension
     Dosage: 5 MG/5 MG, 1-0-0
     Route: 048
  17. RIVOTRIL [Concomitant]
     Active Substance: CLONAZEPAM
     Dosage: ONE FOR NIGHT
     Route: 048
  18. BISULEPIN [Concomitant]
     Active Substance: BISULEPIN
  19. DEXAMETHASONE [Concomitant]
     Active Substance: DEXAMETHASONE

REACTIONS (11)
  - Haemoptysis [Unknown]
  - Renal failure [Unknown]
  - General physical health deterioration [Unknown]
  - Hypovolaemia [Unknown]
  - Urinary retention [Recovered/Resolved with Sequelae]
  - Pancytopenia [Unknown]
  - Dyspnoea [Unknown]
  - Pulmonary embolism [Unknown]
  - Sepsis [Unknown]
  - Death [Fatal]
  - Hypotension [Unknown]

NARRATIVE: CASE EVENT DATE: 20220212
